FAERS Safety Report 6320491-9 (Version None)
Quarter: 2009Q3

REPORT INFORMATION
  Report Type: 
  Country: None (occurrence: None)
  Receive Date: 20090822
  Receipt Date: 20081113
  Transmission Date: 20100115
  Serious: No
  Sender: FDA-Public Use
  Company Number: US-ABBOTT-08P-163-0487925-00

PATIENT
  Sex: Male
  Weight: 113.5 kg

DRUGS (4)
  1. NIASPAN [Suspect]
     Indication: BLOOD CHOLESTEROL
     Route: 048
     Dates: start: 20081107
  2. VERAPAMIL [Concomitant]
     Indication: BLOOD PRESSURE
     Route: 048
  3. IRBESARTAN AND HYDROCHLOROTHIAZIDE [Concomitant]
     Indication: BLOOD PRESSURE
     Dosage: 300/12.5MG
     Route: 048
  4. PIOGLITAZONE [Concomitant]
     Indication: DIABETES MELLITUS
     Route: 048

REACTIONS (1)
  - BLOOD GLUCOSE INCREASED [None]
